FAERS Safety Report 20607228 (Version 1)
Quarter: 2022Q1

REPORT INFORMATION
  Report Type: Spontaneous
  Country: US (occurrence: US)
  Receive Date: 20220317
  Receipt Date: 20220317
  Transmission Date: 20220423
  Serious: Yes (Hospitalization)
  Sender: FDA-Public Use
  Company Number: US-MEDEXUS PHARMA, INC.-2022MED00107

PATIENT
  Sex: Female

DRUGS (8)
  1. RASUVO [Suspect]
     Active Substance: METHOTREXATE SODIUM
     Indication: Pain
  2. CALCIUM [Concomitant]
     Active Substance: CALCIUM
  3. HAIR VITAMIN [Concomitant]
  4. LISINOPRIL [Concomitant]
     Active Substance: LISINOPRIL
     Dosage: 12.5 MG, 1X/DAY
  5. DICLOFENAC [Concomitant]
     Active Substance: DICLOFENAC
  6. CITALOPRAM [Concomitant]
     Active Substance: CITALOPRAM HYDROBROMIDE
     Dosage: UNK, AS NEEDED
  7. FOLIC ACID [Concomitant]
     Active Substance: FOLIC ACID
  8. ^DICYCLINE^ [Concomitant]

REACTIONS (6)
  - COVID-19 [Recovered/Resolved]
  - Memory impairment [Not Recovered/Not Resolved]
  - Pain in extremity [Not Recovered/Not Resolved]
  - Off label use [Recovered/Resolved]
  - Arthralgia [Not Recovered/Not Resolved]
  - Back pain [Not Recovered/Not Resolved]
